FAERS Safety Report 8462639-6 (Version None)
Quarter: 2012Q2

REPORT INFORMATION
  Report Type: 
  Country: None (occurrence: None)
  Receive Date: 20120619
  Receipt Date: 20120619
  Transmission Date: 20120825
  Serious: Yes (Hospitalization)
  Sender: FDA-Public Use
  Company Number: None

PATIENT
  Age: 78 Year
  Sex: Female

DRUGS (4)
  1. CALCITRIOL [Concomitant]
  2. WARFARIN SODIUM [Suspect]
     Indication: DRUG THERAPY
     Dosage: 5 MG, WHS, PO
     Route: 048
  3. HYDROCHLOROTHIAZIDE [Concomitant]
  4. DONEPEZIL HCL [Concomitant]

REACTIONS (6)
  - ATRIOVENTRICULAR BLOCK FIRST DEGREE [None]
  - INTERNATIONAL NORMALISED RATIO DECREASED [None]
  - HAEMORRHAGIC STROKE [None]
  - VISION BLURRED [None]
  - HYPERTENSION [None]
  - DYSPNOEA [None]
